FAERS Safety Report 6673734-6 (Version None)
Quarter: 2010Q2

REPORT INFORMATION
  Report Type: 
  Country: None (occurrence: None)
  Receive Date: 20100407
  Receipt Date: 20100323
  Transmission Date: 20101027
  Serious: Yes (Death, Other)
  Sender: FDA-Public Use
  Company Number: KADN20100082

PATIENT
  Age: 53 Year
  Sex: Male

DRUGS (1)
  1. MORPHINE [Suspect]
     Indication: PAIN
     Dosage: PER ORAL
     Route: 048
     Dates: end: 20080101

REACTIONS (7)
  - CARDIOMEGALY [None]
  - COMPLETED SUICIDE [None]
  - CORONARY ARTERY DISEASE [None]
  - CORONARY ARTERY STENOSIS [None]
  - MYOCARDIAL INFARCTION [None]
  - OVERDOSE [None]
  - PULMONARY OEDEMA [None]
